FAERS Safety Report 8496933-X (Version None)
Quarter: 2012Q3

REPORT INFORMATION
  Report Type: 
  Country: None (occurrence: None)
  Receive Date: 20120709
  Receipt Date: 20120625
  Transmission Date: 20120928
  Serious: Yes (Other)
  Sender: FDA-Public Use
  Company Number: CHPA2012US010494

PATIENT
  Age: 35 Year
  Sex: Female

DRUGS (3)
  1. ADDERALL 5 [Concomitant]
     Dosage: UNK
     Route: 048
  2. EXCEDRIN PM TABLETS [Suspect]
     Dosage: UNK DF, UNK
     Route: 048
  3. EXCEDRIN PM TABLETS [Suspect]
     Indication: PAIN
     Dosage: 2 DF, UNK
     Route: 048
     Dates: start: 20120111, end: 20120112

REACTIONS (6)
  - HALLUCINATION [None]
  - TREMOR [None]
  - FATIGUE [None]
  - POOR QUALITY SLEEP [None]
  - SOMNOLENCE [None]
  - FEELING ABNORMAL [None]
